FAERS Safety Report 6180669-4 (Version None)
Quarter: 2009Q2

REPORT INFORMATION
  Report Type: 
  Country: None (occurrence: None)
  Receive Date: 20090506
  Receipt Date: 20090429
  Transmission Date: 20091009
  Serious: Yes (Hospitalization)
  Sender: FDA-Public Use
  Company Number: BR-BAYER-200821764LA

PATIENT
  Age: 54 Year
  Sex: Female

DRUGS (3)
  1. BETAFERON [Suspect]
     Indication: SECONDARY PROGRESSIVE MULTIPLE SCLEROSIS
     Dosage: BETAJECT
     Route: 058
     Dates: start: 20080726
  2. AMYTRIL [Concomitant]
     Indication: ANXIETY
     Dosage: TOTAL DAILY DOSE: 25 MG  UNIT DOSE: 25 MG
     Route: 048
     Dates: start: 20080201
  3. UNKNOWN CORTICOID PULSE THERAPY [Concomitant]
     Indication: MULTIPLE SCLEROSIS RELAPSE
     Route: 065
     Dates: start: 20090101, end: 20090101

REACTIONS (21)
  - ABDOMINAL PAIN UPPER [None]
  - ASTHENIA [None]
  - BACK PAIN [None]
  - BLOOD GLUCOSE INCREASED [None]
  - CHILLS [None]
  - FAECAL INCONTINENCE [None]
  - HEADACHE [None]
  - INJECTION SITE PAIN [None]
  - MOTOR DYSFUNCTION [None]
  - MULTIPLE SCLEROSIS [None]
  - MULTIPLE SCLEROSIS RELAPSE [None]
  - MUSCLE CONTRACTURE [None]
  - MUSCLE RIGIDITY [None]
  - MUSCULAR WEAKNESS [None]
  - MYALGIA [None]
  - NO ADVERSE EVENT [None]
  - PAIN [None]
  - PROCTALGIA [None]
  - SENSORY LOSS [None]
  - TREMOR [None]
  - URINARY INCONTINENCE [None]
